FAERS Safety Report 19424094 (Version 1)
Quarter: 2021Q2

REPORT INFORMATION
  Report Type: Report from Study
  Country: CO (occurrence: CO)
  Receive Date: 20210616
  Receipt Date: 20210616
  Transmission Date: 20210717
  Serious: Yes (Other)
  Sender: FDA-Public Use
  Company Number: NVSC2021CO130615

PATIENT
  Sex: Female

DRUGS (1)
  1. AFINITOR [Suspect]
     Active Substance: EVEROLIMUS
     Indication: BREAST CANCER
     Dosage: 10 MG, QD
     Route: 048

REACTIONS (7)
  - Asthenia [Unknown]
  - Decreased immune responsiveness [Unknown]
  - Adverse drug reaction [Unknown]
  - Vomiting [Unknown]
  - Burn oral cavity [Unknown]
  - Alopecia [Unknown]
  - Weight decreased [Unknown]
